FAERS Safety Report 8995088 (Version 1)
Quarter: 2013Q1

REPORT INFORMATION
  Report Type: Report from Study
  Country: CA (occurrence: CA)
  Receive Date: 20130102
  Receipt Date: 20130102
  Transmission Date: 20140127
  Serious: Yes (Other)
  Sender: FDA-Public Use
  Company Number: CA-BIOMARINAP-CA-2012-100026

PATIENT
  Sex: 0

DRUGS (4)
  1. KUVAN [Suspect]
     Indication: PHENYLKETONURIA
     Dosage: 1200 MG, QD
     Route: 048
     Dates: start: 20120606, end: 20121206
  2. BLINDED PLACEBO [Suspect]
     Indication: PHENYLKETONURIA
     Dosage: 1200 MG, QD
     Route: 048
     Dates: start: 20120606, end: 20121206
  3. KUVAN [Suspect]
     Dosage: 600 MG, QD
     Dates: start: 20121207
  4. BLINDED PLACEBO [Suspect]
     Dosage: 600 MG, QD
     Dates: start: 20121207

REACTIONS (1)
  - Petit mal epilepsy [Recovered/Resolved]
